FAERS Safety Report 10048422 (Version 6)
Quarter: 2014Q3

REPORT INFORMATION
  Report Type: Spontaneous
  Country: US (occurrence: US)
  Receive Date: 20140331
  Receipt Date: 20140826
  Transmission Date: 20150326
  Serious: Yes (Hospitalization, Other)
  Sender: FDA-Public Use
  Company Number: US-GILEAD-2014-0096764

PATIENT
  Age: 29 Year
  Sex: Female

DRUGS (3)
  1. VELETRI [Concomitant]
     Active Substance: EPOPROSTENOL
     Indication: PRODUCT USED FOR UNKNOWN INDICATION
  2. ADCIRCA [Concomitant]
     Active Substance: TADALAFIL
  3. LETAIRIS [Suspect]
     Active Substance: AMBRISENTAN
     Indication: PULMONARY ARTERIAL HYPERTENSION
     Dosage: 5 MG, UNK
     Route: 065
     Dates: start: 20130416

REACTIONS (11)
  - Abdominal pain [Unknown]
  - Portal hypertensive gastropathy [Unknown]
  - Unevaluable event [Unknown]
  - Ascites [Unknown]
  - Acute respiratory distress syndrome [Unknown]
  - Pneumonia [Unknown]
  - Cardiac failure congestive [Unknown]
  - Liver function test abnormal [Unknown]
  - Infection [Unknown]
  - Renal failure [Unknown]
  - Oedema peripheral [Unknown]
